FAERS Safety Report 16566770 (Version 1)
Quarter: 2019Q3

REPORT INFORMATION
  Report Type: Spontaneous
  Country: FR (occurrence: FR)
  Receive Date: 20190712
  Receipt Date: 20190712
  Transmission Date: 20191004
  Serious: Yes (Hospitalization, Other)
  Sender: FDA-Public Use
  Company Number: FR-CASPER PHARMA LLC-2019CAS000330

PATIENT
  Age: 14 Year
  Sex: Male

DRUGS (2)
  1. LIDOCAINE. [Concomitant]
     Active Substance: LIDOCAINE
     Indication: RHEUMATIC DISORDER
     Dosage: 0.5 MILLILITER (EVERY 15 DAYS FOR 9 MONTHS)
     Route: 065
  2. PENICILLIN G BENZATHINE [Suspect]
     Active Substance: PENICILLIN G BENZATHINE
     Indication: RHEUMATIC DISORDER
     Dosage: 2.4 MILLION INTERNATIONAL UNIT (EVERY 15 DAYS FOR 9 MONTHS)
     Route: 030

REACTIONS (1)
  - Embolia cutis medicamentosa [Unknown]
